FAERS Safety Report 5971648-8 (Version None)
Quarter: 2008Q4

REPORT INFORMATION
  Report Type: 
  Country: None (occurrence: None)
  Receive Date: 20081201
  Receipt Date: 20081120
  Transmission Date: 20090506
  Serious: Yes (Other)
  Sender: FDA-Public Use
  Company Number: US-BAYER-200839178NA

PATIENT
  Age: 57 Year
  Sex: Female

DRUGS (12)
  1. CIPRO [Suspect]
     Indication: URINARY TRACT INFECTION
     Dates: start: 20060405, end: 20060410
  2. KETEK [Suspect]
     Indication: SINUSITIS
     Dates: start: 20060313, end: 20060323
  3. LIPITOR [Suspect]
     Indication: DRUG USE FOR UNKNOWN INDICATION
     Dates: start: 20040101, end: 20060301
  4. LIPITOR [Suspect]
     Dates: start: 20060810, end: 20060912
  5. LEXAPRO [Concomitant]
  6. ATIVAN [Concomitant]
  7. CYTOMEL [Concomitant]
  8. LUNESTA [Concomitant]
  9. SYNTHROID [Concomitant]
  10. AXERT [Concomitant]
     Dates: start: 20060504
  11. NASACORT AQ [Concomitant]
     Dates: start: 20080405
  12. AUGMENTIN '125' [Concomitant]
     Dates: start: 20060501

REACTIONS (9)
  - ABDOMINAL PAIN UPPER [None]
  - BACK PAIN [None]
  - CHROMATURIA [None]
  - EOSINOPHILIA [None]
  - FEELING HOT [None]
  - HEPATITIS [None]
  - LIVER FUNCTION TEST ABNORMAL [None]
  - OCULAR ICTERUS [None]
  - PRURITUS [None]
